FAERS Safety Report 24581838 (Version 1)
Quarter: 2024Q4

REPORT INFORMATION
  Report Type: Spontaneous
  Country: CA (occurrence: CA)
  Receive Date: 20241105
  Receipt Date: 20241105
  Transmission Date: 20250114
  Serious: Yes (Hospitalization, Other)
  Sender: BRISTOL-MYERS SQUIBB COMPANY
  Company Number: CA-BRISTOL-MYERS SQUIBB COMPANY-2024-171187

PATIENT
  Age: 65 Year
  Sex: Female

DRUGS (29)
  1. APIXABAN [Suspect]
     Active Substance: APIXABAN
     Indication: Depression
  2. BREXPIPRAZOLE [Concomitant]
     Active Substance: BREXPIPRAZOLE
     Indication: Depression
  3. BUPROPION HYDROCHLORIDE [Concomitant]
     Active Substance: BUPROPION HYDROCHLORIDE
     Indication: Depression
  4. CANNABIS SATIVA FLOWERING TOP [Concomitant]
     Active Substance: CANNABIS SATIVA FLOWERING TOP
     Indication: Insomnia
  5. CLOMIPRAMINE HYDROCHLORIDE [Concomitant]
     Active Substance: CLOMIPRAMINE HYDROCHLORIDE
     Indication: Depression
  6. ESCITALOPRAM OXALATE [Concomitant]
     Active Substance: ESCITALOPRAM OXALATE
     Indication: Depression
  7. FLUOXETINE HYDROCHLORIDE [Concomitant]
     Active Substance: FLUOXETINE HYDROCHLORIDE
     Indication: Depression
  8. FLUVOXAMINE MALEATE [Concomitant]
     Active Substance: FLUVOXAMINE MALEATE
     Indication: Depression
  9. GABAPENTIN [Concomitant]
     Active Substance: GABAPENTIN
     Indication: Depression
  10. LAMOTRIGINE [Concomitant]
     Active Substance: LAMOTRIGINE
     Indication: Product used for unknown indication
  11. LEMBOREXANT [Concomitant]
     Active Substance: LEMBOREXANT
     Indication: Depression
  12. LEMBOREXANT [Concomitant]
     Active Substance: LEMBOREXANT
  13. LEVOMEPROMAZINE MALEATE [Concomitant]
     Active Substance: LEVOMEPROMAZINE MALEATE
     Indication: Depression
  14. LORAZEPAM [Concomitant]
     Active Substance: LORAZEPAM
     Indication: Depression
  15. LURASIDONE HYDROCHLORIDE [Concomitant]
     Active Substance: LURASIDONE HYDROCHLORIDE
     Indication: Product used for unknown indication
  16. MIRTAZAPINE [Concomitant]
     Active Substance: MIRTAZAPINE
     Indication: Depression
  17. OLANZAPINE [Concomitant]
     Active Substance: OLANZAPINE
     Indication: Depression
  18. PANTOPRAZOLE SODIUM [Concomitant]
     Active Substance: PANTOPRAZOLE SODIUM
     Indication: Product used for unknown indication
  19. PANTOPRAZOLE SODIUM [Concomitant]
     Active Substance: PANTOPRAZOLE SODIUM
  20. PAROXETINE HYDROCHLORIDE [Concomitant]
     Active Substance: PAROXETINE HYDROCHLORIDE
     Indication: Depression
  21. PRAMIPEXOLE DIHYDROCHLORIDE [Concomitant]
     Active Substance: PRAMIPEXOLE DIHYDROCHLORIDE
     Indication: Product used for unknown indication
  22. PRAMIPEXOLE DIHYDROCHLORIDE [Concomitant]
     Active Substance: PRAMIPEXOLE DIHYDROCHLORIDE
  23. QUETIAPINE FUMARATE [Concomitant]
     Active Substance: QUETIAPINE FUMARATE
     Indication: Depression
     Route: 048
  24. RISPERIDONE [Concomitant]
     Active Substance: RISPERIDONE
     Indication: Depression
  25. VENLAFAXINE HYDROCHLORIDE [Concomitant]
     Active Substance: VENLAFAXINE HYDROCHLORIDE
     Indication: Depression
     Dosage: CAPSULE, EXTENDED RELEASE
  26. VORTIOXETINE [Concomitant]
     Active Substance: VORTIOXETINE
     Indication: Depression
  27. VORTIOXETINE [Concomitant]
     Active Substance: VORTIOXETINE
  28. ZOLPIDEM [Concomitant]
     Active Substance: ZOLPIDEM TARTRATE
     Indication: Depression
  29. ZOPICLONE [Concomitant]
     Active Substance: ZOPICLONE
     Indication: Depression

REACTIONS (6)
  - Condition aggravated [Unknown]
  - Drug ineffective [Unknown]
  - Suicidal ideation [Unknown]
  - Suicide attempt [Unknown]
  - Hospitalisation [Unknown]
  - Off label use [Unknown]
